FAERS Safety Report 5151339-6 (Version None)
Quarter: 2006Q4

REPORT INFORMATION
  Report Type: 
  Country: None (occurrence: None)
  Receive Date: 20061115
  Receipt Date: 20061109
  Transmission Date: 20070319
  Serious: Yes (Other)
  Sender: FDA-Public Use
  Company Number: GB-GLAXOSMITHKLINE-B0445919A

PATIENT
  Age: 35 Year
  Sex: Female

DRUGS (3)
  1. LAMICTAL [Suspect]
     Indication: EPILEPSY
     Dosage: 100MG TWICE PER DAY
     Route: 048
  2. LAMOTRIGINE [Suspect]
     Indication: MICROCEPHALY
     Dosage: 100MG TWICE PER DAY
     Route: 048
  3. VALPROATE SODIUM [Concomitant]
     Dosage: 1000MG TWICE PER DAY

REACTIONS (9)
  - DIZZINESS [None]
  - EPILEPSY [None]
  - FALL [None]
  - FATIGUE [None]
  - GAIT DISTURBANCE [None]
  - MALAISE [None]
  - TREMOR [None]
  - VOMITING [None]
  - WEIGHT DECREASED [None]
